FAERS Safety Report 4777041-8 (Version None)
Quarter: 2005Q3

REPORT INFORMATION
  Report Type: 
  Country: None (occurrence: None)
  Receive Date: 20050923
  Receipt Date: 20050914
  Transmission Date: 20060218
  Serious: Yes (Other)
  Sender: FDA-Public Use
  Company Number: AU-GLAXOSMITHKLINE-B0393982A

PATIENT
  Age: 3 Year
  Sex: Female
  Weight: 16 kg

DRUGS (1)
  1. CHILDREN'S PANADOL COLOURFREE SUSPENSION 1-5 YEARS [Suspect]
     Dosage: 2736MG PER DAY
     Route: 048

REACTIONS (2)
  - ACCIDENTAL OVERDOSE [None]
  - NO ADVERSE DRUG EFFECT [None]
